FAERS Safety Report 7989287-6 (Version None)
Quarter: 2011Q4

REPORT INFORMATION
  Report Type: 
  Country: None (occurrence: None)
  Receive Date: 20111219
  Receipt Date: 20111212
  Transmission Date: 20120403
  Serious: Yes (Death)
  Sender: FDA-Public Use
  Company Number: IT-CEPHALON-2011006082

PATIENT
  Sex: Male

DRUGS (5)
  1. CEFTAZIDIME PENTAHYDRATE [Concomitant]
  2. ACETAMINOPHEN [Concomitant]
  3. AMIKACINE SULPHATE [Concomitant]
  4. BENDAMUSTINE HCL [Suspect]
     Route: 042
     Dates: start: 20110803
  5. MABTHERA [Concomitant]
     Dates: start: 20110803, end: 20110803

REACTIONS (4)
  - LEUKOPENIA [None]
  - DIARRHOEA [None]
  - PYREXIA [None]
  - BRONCHOPNEUMONIA [None]
